FAERS Safety Report 4744848-2 (Version None)
Quarter: 2005Q3

REPORT INFORMATION
  Report Type: 
  Country: None (occurrence: None)
  Receive Date: 20050811
  Receipt Date: 20050803
  Transmission Date: 20060218
  Serious: Yes (Other)
  Sender: FDA-Public Use
  Company Number: S05-USA-00052-01

PATIENT
  Age: 52 Year
  Sex: Male

DRUGS (4)
  1. LEXAPRO [Suspect]
     Indication: DEPRESSION
     Dosage: 10 MG QD PO
     Route: 048
     Dates: start: 20040401, end: 20041001
  2. ATENOLOL [Concomitant]
  3. INDERAL [Concomitant]
  4. LIPITOR [Concomitant]

REACTIONS (4)
  - AMNESIA [None]
  - IMPAIRED DRIVING ABILITY [None]
  - NERVOUS SYSTEM DISORDER [None]
  - VASCULAR DEMENTIA [None]
